FAERS Safety Report 25789610 (Version 1)
Quarter: 2025Q3

REPORT INFORMATION
  Report Type: Spontaneous
  Country: US (occurrence: US)
  Receive Date: 20250911
  Receipt Date: 20250911
  Transmission Date: 20251020
  Serious: No
  Sender: TARO
  Company Number: US-TARO PHARMACEUTICALS USA INC.-2025TAR00513

PATIENT

DRUGS (1)
  1. METRONIDAZOLE [Suspect]
     Active Substance: METRONIDAZOLE
     Indication: Product used for unknown indication
     Route: 067

REACTIONS (4)
  - Vulvovaginal discomfort [Recovering/Resolving]
  - Vaginal discharge [Recovering/Resolving]
  - Wrong product administered [Unknown]
  - Product dispensing error [Unknown]
